FAERS Safety Report 6065856-8 (Version None)
Quarter: 2009Q1

REPORT INFORMATION
  Report Type: 
  Country: None (occurrence: None)
  Receive Date: 20090205
  Receipt Date: 20090123
  Transmission Date: 20090719
  Serious: Yes (Hospitalization)
  Sender: FDA-Public Use
  Company Number: FR-JNJFOC-20090200745

PATIENT
  Sex: Male

DRUGS (12)
  1. TOPALGIC [Suspect]
     Route: 048
     Dates: start: 20081211, end: 20081216
  2. TOPALGIC [Suspect]
     Indication: PAIN
     Route: 048
     Dates: start: 20081211, end: 20081216
  3. TAVANIC [Suspect]
     Indication: DRUG USE FOR UNKNOWN INDICATION
     Route: 048
  4. RIVOTRIL [Suspect]
     Route: 048
  5. RIVOTRIL [Suspect]
     Indication: DRUG USE FOR UNKNOWN INDICATION
     Route: 048
  6. LAROXYL [Suspect]
     Route: 048
  7. LAROXYL [Suspect]
     Indication: DRUG USE FOR UNKNOWN INDICATION
     Route: 048
  8. LOVENOX [Concomitant]
     Route: 065
  9. STAGID [Concomitant]
     Route: 065
  10. CARDENSIEL [Concomitant]
     Route: 065
  11. PREVISCAN [Concomitant]
     Route: 065
  12. ACETAMINOPHEN [Concomitant]
     Route: 065

REACTIONS (7)
  - ATRIAL FIBRILLATION [None]
  - BLOOD PRESSURE SYSTOLIC INCREASED [None]
  - CONFUSIONAL STATE [None]
  - HEART SOUNDS ABNORMAL [None]
  - RALES [None]
  - SOMNOLENCE [None]
  - URINARY RETENTION [None]
